FAERS Safety Report 6742624-2 (Version None)
Quarter: 2010Q2

REPORT INFORMATION
  Report Type: 
  Country: None (occurrence: None)
  Receive Date: 20100526
  Receipt Date: 20100512
  Transmission Date: 20101027
  Serious: Yes (Death, Congenital Anomaly, Other)
  Sender: FDA-Public Use
  Company Number: US-MERCK-1005USA01567B1

PATIENT
  Age: 0 Day
  Sex: Male
  Weight: 1 kg

DRUGS (4)
  1. ISENTRESS [Suspect]
     Indication: HIV INFECTION
     Route: 064
     Dates: start: 20100322
  2. PREZISTA [Suspect]
     Indication: HIV INFECTION
     Route: 064
     Dates: start: 20100322
  3. NORVIR [Suspect]
     Indication: HIV INFECTION
     Route: 064
     Dates: start: 20100322
  4. TRUVADA [Suspect]
     Indication: HIV INFECTION
     Route: 064
     Dates: start: 20100322

REACTIONS (5)
  - DRUG EXPOSURE DURING PREGNANCY [None]
  - PREMATURE BABY [None]
  - PULMONARY HYPOPLASIA [None]
  - SMALL FOR DATES BABY [None]
  - VENTRICULAR SEPTAL DEFECT [None]
